FAERS Safety Report 8781157 (Version 1)
Quarter: 2012Q4

REPORT INFORMATION
  Report Type: 
  Country: FR (occurrence: FR)
  Receive Date: 20120913
  Receipt Date: 20120913
  Transmission Date: 20130627
  Serious: Yes (Other)
  Sender: FDA-Public Use
  Company Number: FR-009507513-0911FRA00004

PATIENT

DRUGS (13)
  1. ISENTRESS [Suspect]
     Indication: HIV INFECTION
     Dosage: 400 mg, bid
     Route: 048
     Dates: start: 20090429
  2. ATAZANAVIR SULFATE [Suspect]
     Indication: HIV INFECTION
     Dosage: 200 mg, bid
     Route: 048
     Dates: start: 20050716
  3. CANDESARTAN CILEXETIL (+) HYDROCHLOROTHIAZIDE [Concomitant]
     Dosage: 1 DF, qd
     Route: 048
     Dates: start: 20050606
  4. BISOPROLOL FUMARATE [Concomitant]
     Dosage: 10 mg, qd
     Route: 048
     Dates: start: 20050603
  5. LOPERAMIDE HYDROCHLORIDE [Concomitant]
     Indication: DIARRHOEA
     Dosage: 2 DF, qd
     Route: 048
     Dates: start: 20050611
  6. CLOPIDOGREL BISULFATE [Concomitant]
     Dosage: 75 mg, qd
     Route: 048
     Dates: start: 20060826
  7. FAMCICLOVIR [Concomitant]
     Dosage: 1 DF, tid
     Route: 048
     Dates: start: 20060901
  8. PIOGLITAZONE HYDROCHLORIDE [Concomitant]
     Dosage: 30 mg, qd
     Route: 048
     Dates: start: 20070330
  9. MK-9355 [Concomitant]
     Dosage: 300 mg, qd
     Route: 048
     Dates: start: 20080128
  10. ACETAMINOPHEN (+) PROPOXYPHENE HYDROCHLORIDE [Concomitant]
     Dosage: 2 DF, tid
     Route: 048
     Dates: start: 20080807
  11. ROSUVASTATIN CALCIUM [Concomitant]
     Dosage: 10 mg, qd
     Route: 048
     Dates: start: 20090429
  12. INTELENCE [Suspect]
     Indication: HIV INFECTION
     Route: 048
  13. CELSENTRI [Suspect]
     Indication: HIV INFECTION
     Route: 048

REACTIONS (9)
  - Lipoatrophy [Not Recovered/Not Resolved]
  - Malaise [Not Recovered/Not Resolved]
  - Headache [Not Recovered/Not Resolved]
  - Arthralgia [Not Recovered/Not Resolved]
  - Fatigue [Not Recovered/Not Resolved]
  - Dysphonia [Not Recovered/Not Resolved]
  - Throat irritation [Not Recovered/Not Resolved]
  - Renal failure acute [Unknown]
  - Coronary artery disease [Unknown]
